FAERS Safety Report 8462307-0 (Version None)
Quarter: 2012Q2

REPORT INFORMATION
  Report Type: 
  Country: None (occurrence: None)
  Receive Date: 20120625
  Receipt Date: 20120615
  Transmission Date: 20120825
  Serious: Yes (Other)
  Sender: FDA-Public Use
  Company Number: AU-ASTRAZENECA-2012SE31163

PATIENT
  Age: 15748 Day
  Sex: Female
  Weight: 100 kg

DRUGS (5)
  1. SYMBICORT [Suspect]
     Indication: ASTHMA
     Dosage: 200/6 MCG UNKNOWN
     Route: 055
     Dates: start: 20120604, end: 20120605
  2. GILENYA [Concomitant]
     Indication: MULTIPLE SCLEROSIS
     Route: 048
     Dates: start: 20110101
  3. PRISTIQ [Concomitant]
     Indication: MULTIPLE SCLEROSIS
     Route: 048
     Dates: start: 20100101
  4. PULMICORT [Suspect]
     Indication: ASTHMA PROPHYLAXIS
     Route: 055
     Dates: start: 20030101
  5. AVONEX [Concomitant]
     Indication: MULTIPLE SCLEROSIS
     Route: 030
     Dates: start: 20020601, end: 20100101

REACTIONS (9)
  - DRUG HYPERSENSITIVITY [None]
  - RASH [None]
  - LIP SWELLING [None]
  - ANGIOEDEMA [None]
  - SWOLLEN TONGUE [None]
  - WHEEZING [None]
  - ORAL MUCOSAL BLISTERING [None]
  - DYSPNOEA [None]
  - STRIDOR [None]
